FAERS Safety Report 10688413 (Version 2)
Quarter: 2015Q1

REPORT INFORMATION
  Report Type: Spontaneous
  Country: US (occurrence: US)
  Receive Date: 20150102
  Receipt Date: 20150127
  Transmission Date: 20150720
  Serious: No
  Sender: FDA-Public Use
  Company Number: US-SHIRE-US201409240

PATIENT
  Age: 7 Year
  Sex: Male
  Weight: 28.12 kg

DRUGS (6)
  1. VAYARIN [Concomitant]
     Active Substance: DOCONEXENT\ICOSAPENT\PHOSPHATIDYL SERINE
     Indication: NUTRITIONAL SUPPLEMENTATION
     Dosage: 2 DF, 1X/DAY:QD
     Route: 048
     Dates: start: 2012
  2. INTUNIV [Suspect]
     Active Substance: GUANFACINE HYDROCHLORIDE
     Dosage: 3 MG (ONE 1 MG AND ONE 2 MG TABLET), 1X/DAY:QD
     Route: 048
     Dates: start: 20141213
  3. INTUNIV [Suspect]
     Active Substance: GUANFACINE HYDROCHLORIDE
     Dosage: 1 MG, 1X/DAY:QD
     Route: 048
     Dates: start: 2013, end: 201404
  4. INTUNIV [Suspect]
     Active Substance: GUANFACINE HYDROCHLORIDE
     Dosage: 3 MG, 1X/DAY:QD
     Route: 048
     Dates: start: 20141129, end: 20141212
  5. INTUNIV [Suspect]
     Active Substance: GUANFACINE HYDROCHLORIDE
     Dosage: 2 MG, 1X/DAY:QD
     Route: 048
     Dates: start: 201404, end: 201410
  6. INTUNIV [Suspect]
     Active Substance: GUANFACINE HYDROCHLORIDE
     Indication: ATTENTION DEFICIT/HYPERACTIVITY DISORDER
     Dosage: 3 MG (ONE 1 MG AND ONE 2 MG TABLET), 1X/DAY:QD
     Route: 048
     Dates: start: 201410, end: 20141128

REACTIONS (5)
  - Dizziness [Recovered/Resolved]
  - Drug ineffective [Recovered/Resolved]
  - Anxiety [Not Recovered/Not Resolved]
  - Adverse drug reaction [Recovered/Resolved]
  - Product quality issue [Recovered/Resolved]

NARRATIVE: CASE EVENT DATE: 2014
